FAERS Safety Report 7588854-1 (Version None)
Quarter: 2011Q3

REPORT INFORMATION
  Report Type: 
  Country: None (occurrence: None)
  Receive Date: 20110705
  Receipt Date: 20110616
  Transmission Date: 20111222
  Serious: Yes (Hospitalization, Other)
  Sender: FDA-Public Use
  Company Number: NL-TEVA-276517ISR

PATIENT
  Sex: Male

DRUGS (9)
  1. METFORMIN HCL [Concomitant]
     Dosage: 2000 MILLIGRAM;
     Route: 048
  2. LEVOFLOXACIN [Concomitant]
     Indication: PROPHYLAXIS
     Dosage: 500 MILLIGRAM;
     Route: 048
     Dates: start: 20110304, end: 20110308
  3. DUTASTERIDE [Concomitant]
     Dosage: .5 MILLIGRAM;
     Route: 048
  4. ETILEFRINE [Concomitant]
     Dosage: 120 MILLIGRAM;
     Route: 048
  5. BICALUTAMIDE [Suspect]
     Dosage: 150 MILLIGRAM;
     Route: 048
     Dates: start: 20110303
  6. NOVOMIX [Concomitant]
     Dosage: 30 IU (INTERNATIONAL UNIT);
     Route: 058
  7. HYZAAR [Concomitant]
     Dosage: 100/25MG X1 DAY
     Route: 048
  8. METRONIDAZOLE [Concomitant]
     Indication: PROPHYLAXIS
     Dosage: 1500 MILLIGRAM;
     Route: 048
     Dates: start: 20110304, end: 20110309
  9. NOVOMIX [Concomitant]
     Indication: DIABETES MELLITUS
     Dosage: 44 IU (INTERNATIONAL UNIT);
     Route: 058

REACTIONS (2)
  - HYPOGLYCAEMIA [None]
  - BLOOD GLUCOSE FLUCTUATION [None]
